FAERS Safety Report 10202434 (Version 1)
Quarter: 2014Q2

REPORT INFORMATION
  Report Type: Spontaneous
  Country: US (occurrence: US)
  Receive Date: 20140528
  Receipt Date: 20140528
  Transmission Date: 20141212
  Serious: Yes (Other)
  Sender: FDA-Public Use
  Company Number: US-B.I. PHARMACEUTICALS,INC./RIDGEFIELD-2014-BI-22930BP

PATIENT
  Age: 75 Year
  Sex: Male

DRUGS (5)
  1. TRADJENTA [Suspect]
     Indication: TYPE 2 DIABETES MELLITUS
     Dosage: 5 MG
     Route: 048
     Dates: start: 2012, end: 201405
  2. LANTUS [Concomitant]
     Route: 065
  3. GLIPIZIDE [Concomitant]
     Route: 065
  4. METFORMIN [Concomitant]
     Route: 065
  5. APIDRA [Concomitant]
     Route: 065

REACTIONS (1)
  - Pancreatic carcinoma [Not Recovered/Not Resolved]
